FAERS Safety Report 7749188-5 (Version None)
Quarter: 2011Q3

REPORT INFORMATION
  Report Type: 
  Country: None (occurrence: None)
  Receive Date: 20110909
  Receipt Date: 20110826
  Transmission Date: 20111222
  Serious: Yes (Other)
  Sender: FDA-Public Use
  Company Number: GER/UKI/10/0013200

PATIENT
  Age: 40 Year
  Sex: Male

DRUGS (2)
  1. AVODART [Suspect]
     Indication: ALOPECIA
     Dosage: 500 MEG, 1 IN 1 D, ORAL
     Route: 048
     Dates: start: 20080101, end: 20090101
  2. FINASTERIDE [Suspect]
     Indication: ALOPECIA
     Dosage: 1 MG, 2 IN 1 D, ORAL
     Route: 048
     Dates: start: 20060101, end: 20080101

REACTIONS (5)
  - DARK CIRCLES UNDER EYES [None]
  - DYSGEUSIA [None]
  - INTENTIONAL DRUG MISUSE [None]
  - WRONG TECHNIQUE IN DRUG USAGE PROCESS [None]
  - SKIN TURGOR DECREASED [None]
